FAERS Safety Report 17244365 (Version 5)
Quarter: 2020Q1

REPORT INFORMATION
  Report Type: Report from Study
  Country: US (occurrence: US)
  Receive Date: 20200107
  Receipt Date: 20200318
  Transmission Date: 20200409
  Serious: Yes (Hospitalization, Other)
  Sender: FDA-Public Use
  Company Number: US-GILEAD-2019-0444966

PATIENT
  Age: 42 Year
  Sex: Female

DRUGS (4)
  1. AMBRISENTAN [Suspect]
     Active Substance: AMBRISENTAN
     Indication: PRODUCT USED FOR UNKNOWN INDICATION
     Dosage: 10 MG, QD
     Route: 048
     Dates: start: 20191024
  2. ADEMPAS [Concomitant]
     Active Substance: RIOCIGUAT
  3. VELETRI [Concomitant]
     Active Substance: EPOPROSTENOL
     Dosage: 18 NG/KG/MIN
  4. ELIQUIS [Concomitant]
     Active Substance: APIXABAN

REACTIONS (10)
  - Respiratory arrest [Unknown]
  - Cardiac tamponade [Unknown]
  - Endotracheal intubation [Not Recovered/Not Resolved]
  - Surgery [Not Recovered/Not Resolved]
  - Pain in jaw [Unknown]
  - Cerebrovascular accident [Unknown]
  - Tracheostomy [Not Recovered/Not Resolved]
  - Pain in extremity [Unknown]
  - Pulmonary embolism [Unknown]
  - Nausea [Unknown]

NARRATIVE: CASE EVENT DATE: 20191216
